FAERS Safety Report 6749425-X (Version None)
Quarter: 2010Q2

REPORT INFORMATION
  Report Type: 
  Country: None (occurrence: None)
  Receive Date: 20100601
  Receipt Date: 20100526
  Transmission Date: 20101027
  Serious: Yes (Other)
  Sender: FDA-Public Use
  Company Number: MY-ROCHE-705567

PATIENT
  Age: 58 Year
  Sex: Male
  Weight: 58 kg

DRUGS (5)
  1. ROCEPHIN [Suspect]
     Indication: MENINGITIS
     Route: 042
  2. ACYCLOVIR SODIUM [Concomitant]
  3. MEROPENEM [Concomitant]
  4. CETRIZINE [Concomitant]
  5. RANITIDINE [Concomitant]

REACTIONS (1)
  - ECZEMA INFECTED [None]
